FAERS Safety Report 19396790 (Version 1)
Quarter: 2021Q2

REPORT INFORMATION
  Report Type: Spontaneous
  Country: US (occurrence: US)
  Receive Date: 20210609
  Receipt Date: 20210609
  Transmission Date: 20210717
  Serious: No
  Sender: FDA-Public Use
  Company Number: NVSC2021US124780

PATIENT
  Sex: Male

DRUGS (1)
  1. MEKINIST [Suspect]
     Active Substance: TRAMETINIB DIMETHYL SULFOXIDE
     Indication: SPINAL MENINGIOMA MALIGNANT
     Dosage: 1.5 MG, QD
     Route: 048
     Dates: start: 20210428

REACTIONS (2)
  - Abdominal discomfort [Unknown]
  - Rash [Unknown]
